FAERS Safety Report 6754073-1 (Version None)
Quarter: 2010Q2

REPORT INFORMATION
  Report Type: 
  Country: None (occurrence: None)
  Receive Date: 20100601
  Receipt Date: 20100512
  Transmission Date: 20101027
  Serious: Yes (Hospitalization)
  Sender: FDA-Public Use
  Company Number: DSA_43183_2010

PATIENT
  Sex: Female

DRUGS (9)
  1. DILTIAZEM HYDROCHLORIDE [Suspect]
     Indication: HYPERTENSION
     Dosage: 300 MG QD ORAL
     Route: 048
     Dates: start: 20091226, end: 20100201
  2. FLUDEX /00340101/ (FLUDEX - INDAPAMIDE) (NOT SPECIFIED) [Suspect]
     Indication: HYPERTENSION
     Dosage: 1.5 MG QD ORAL
     Route: 048
     Dates: start: 20091226, end: 20100103
  3. SEROPLEX (SEROPLEX - ESCITALOPRAM OXALATE) (NOT SPECIFIED) [Suspect]
     Indication: ANXIETY
     Dosage: DOSE: 1 UNIT DAILY ORAL
     Route: 048
     Dates: start: 20091201, end: 20100103
  4. OLMETEC (OLMETEC - OLMEARTAN MEDOXOMIL) (NOT SPECIFIED) [Suspect]
     Indication: HYPERTENSION
     Dosage: DOSE: 1 UNIT DAILY ORAL
     Route: 048
     Dates: start: 20091226, end: 20100201
  5. AZOPT [Suspect]
     Indication: GLAUCOMA
     Dosage: 1 GTT QD OPHTHALMIC
     Route: 047
     Dates: start: 20060101
  6. XALATAN [Suspect]
     Indication: GLAUCOMA
     Dosage: 1 GTT QD OPHTHALMIC
     Route: 047
     Dates: start: 20060101
  7. LEXOMIL (LEXOMIL - BROMAZEPAM) (NOT SPECIFIED) [Suspect]
     Indication: ANXIETY
     Dosage: 0.25 DF QD, DOSE: 0.25 UNITS DAILY ORAL
     Route: 048
     Dates: end: 20100201
  8. ESOMEPRAZOLE MAGNESIUM [Suspect]
     Indication: DRUG USE FOR UNKNOWN INDICATION
     Dosage: 20 MG QD ORAL
     Route: 048
     Dates: end: 20100114
  9. CARDIOCAM /00959501/ (CARDIOCALM - HYOSCYAMUS NIGER DRY EXTRACT/PHENOP [Suspect]
     Indication: DRUG USE FOR UNKNOWN INDICATION
     Dosage: DOSE: DAILY ORAL
     Route: 048
     Dates: end: 20091226

REACTIONS (5)
  - DEPRESSION [None]
  - HYPOKALAEMIA [None]
  - HYPONATRAEMIA [None]
  - VASCULITIS CEREBRAL [None]
  - VOMITING [None]
